FAERS Safety Report 20466825 (Version 3)
Quarter: 2022Q1

REPORT INFORMATION
  Report Type: Spontaneous
  Country: ES (occurrence: ES)
  Receive Date: 20220214
  Receipt Date: 20220323
  Transmission Date: 20220423
  Serious: Yes (Life-Threatening, Hospitalization, Other)
  Sender: FDA-Public Use
  Company Number: ES-AUROBINDO-AUR-APL-2022-003423

PATIENT
  Age: 51 Year
  Sex: Female

DRUGS (24)
  1. ALLOPURINOL [Suspect]
     Active Substance: ALLOPURINOL
     Indication: Hypomania
     Dosage: 300 MILLIGRAM
     Route: 065
     Dates: start: 20200904, end: 20201016
  2. ALLOPURINOL [Suspect]
     Active Substance: ALLOPURINOL
     Indication: Prophylaxis
  3. OLANZAPINE [Suspect]
     Active Substance: OLANZAPINE
     Indication: Hypomania
     Dosage: UNK
     Route: 065
     Dates: start: 202010, end: 20201030
  4. BORTEZOMIB [Suspect]
     Active Substance: BORTEZOMIB
     Indication: Plasma cell myeloma
     Dosage: 1.25 MILLIGRAM
     Route: 065
  5. BORTEZOMIB [Suspect]
     Active Substance: BORTEZOMIB
     Dosage: UNK
     Route: 065
     Dates: start: 20200911
  6. BORTEZOMIB [Suspect]
     Active Substance: BORTEZOMIB
     Dosage: UNK
     Route: 065
     Dates: start: 20200914
  7. BORTEZOMIB [Suspect]
     Active Substance: BORTEZOMIB
     Dosage: UNK
     Route: 065
     Dates: start: 20201008
  8. BORTEZOMIB [Suspect]
     Active Substance: BORTEZOMIB
     Dosage: UNK
     Route: 065
     Dates: start: 20201016
  9. BORTEZOMIB [Suspect]
     Active Substance: BORTEZOMIB
     Dosage: UNK
     Route: 065
     Dates: start: 20201013
  10. BORTEZOMIB [Suspect]
     Active Substance: BORTEZOMIB
     Dosage: UNK
     Route: 065
     Dates: start: 20201005
  11. BORTEZOMIB [Suspect]
     Active Substance: BORTEZOMIB
     Dosage: UNK
     Route: 065
     Dates: start: 20200907
  12. ACYCLOVIR [Suspect]
     Active Substance: ACYCLOVIR
     Indication: Hypomania
     Dosage: UNK
     Route: 065
  13. ACYCLOVIR [Suspect]
     Active Substance: ACYCLOVIR
     Indication: Prophylaxis
     Dosage: 800 MILLIGRAM
     Route: 065
     Dates: start: 20200904, end: 20201030
  14. BEMIPARIN [Suspect]
     Active Substance: BEMIPARIN
     Indication: Hypomania
     Dosage: UNK
     Route: 065
     Dates: start: 202010, end: 20201030
  15. BEMIPARIN [Suspect]
     Active Substance: BEMIPARIN
     Indication: Prophylaxis
  16. DEXAMETHASONE [Suspect]
     Active Substance: DEXAMETHASONE
     Indication: Plasma cell myeloma
     Dosage: UNK
     Route: 065
     Dates: start: 202009
  17. FAMOTIDINE [Suspect]
     Active Substance: FAMOTIDINE
     Indication: Hypomania
     Dosage: UNK
     Route: 065
     Dates: start: 20200904, end: 20201030
  18. FAMOTIDINE [Suspect]
     Active Substance: FAMOTIDINE
     Indication: Prophylaxis
  19. THALIDOMIDE [Suspect]
     Active Substance: THALIDOMIDE
     Indication: Plasma cell myeloma
     Dosage: 25 MILLIGRAM
     Route: 065
  20. THALIDOMIDE [Suspect]
     Active Substance: THALIDOMIDE
     Indication: Prophylaxis
     Dosage: 50 MILLIGRAM
     Route: 065
     Dates: start: 20200904, end: 20201026
  21. THALIDOMIDE [Suspect]
     Active Substance: THALIDOMIDE
     Dosage: 100 MILLIGRAM, ONCE A DAY
     Route: 065
  22. THALIDOMIDE [Suspect]
     Active Substance: THALIDOMIDE
     Dosage: 150 MILLIGRAM, ONCE A DAY
     Route: 065
  23. ZOLEDRONIC ACID [Suspect]
     Active Substance: ZOLEDRONIC ACID
     Indication: Hypomania
     Dosage: UNK
     Route: 065
     Dates: start: 202009
  24. ZOLEDRONIC ACID [Suspect]
     Active Substance: ZOLEDRONIC ACID
     Indication: Prophylaxis

REACTIONS (11)
  - Drug reaction with eosinophilia and systemic symptoms [Recovered/Resolved]
  - Human herpesvirus 6 infection reactivation [Unknown]
  - Liver injury [Unknown]
  - Periorbital oedema [Recovering/Resolving]
  - Rash pruritic [Recovering/Resolving]
  - Erythema [Recovering/Resolving]
  - Eosinophilia [Recovering/Resolving]
  - Face oedema [Recovering/Resolving]
  - Skin lesion [Recovering/Resolving]
  - Papule [Recovering/Resolving]
  - Drug eruption [Unknown]

NARRATIVE: CASE EVENT DATE: 20201022
